FAERS Safety Report 4301260-8 (Version None)
Quarter: 2004Q1

REPORT INFORMATION
  Report Type: 
  Country: None (occurrence: None)
  Receive Date: 20040219
  Receipt Date: 20040210
  Transmission Date: 20041129
  Serious: Yes (Hospitalization)
  Sender: FDA-Public Use
  Company Number: 2004PK00323

PATIENT
  Age: 75 Year
  Sex: Female
  Weight: 47 kg

DRUGS (5)
  1. METOPROLOL SUCCINATE [Suspect]
     Indication: HYPERTENSION
     Dosage: 23.75 MG BID PO
     Route: 048
     Dates: start: 20000101, end: 20031030
  2. DIGITOXIN TAB [Suspect]
     Indication: ATRIAL FIBRILLATION
     Dosage: 0.07 MG DAILY PO
     Route: 048
     Dates: start: 20000101, end: 20031030
  3. ALLOPURINOL [Concomitant]
  4. ASPIRIN [Concomitant]
  5. TOREM [Concomitant]

REACTIONS (7)
  - ANOREXIA [None]
  - ASTHENIA [None]
  - BRADYCARDIA [None]
  - CARDIOACTIVE DRUG LEVEL INCREASED [None]
  - DRUG INTERACTION [None]
  - NAUSEA [None]
  - SYNCOPE [None]
